FAERS Safety Report 14018987 (Version 1)
Quarter: 2017Q3

REPORT INFORMATION
  Report Type: Spontaneous
  Country: GB (occurrence: GB)
  Receive Date: 20170928
  Receipt Date: 20170928
  Transmission Date: 20171128
  Serious: Yes (Other)
  Sender: FDA-Public Use
  Company Number: GB-ACCORD-059023

PATIENT
  Age: 87 Year
  Sex: Female
  Weight: 57 kg

DRUGS (16)
  1. GABAPENTIN. [Concomitant]
     Active Substance: GABAPENTIN
     Dates: start: 20170728
  2. OMEPRAZOLE. [Concomitant]
     Active Substance: OMEPRAZOLE
     Dates: start: 20170510, end: 20170904
  3. PARACETAMOL [Concomitant]
     Active Substance: ACETAMINOPHEN
     Dosage: TAKE 1 OR 2 UP TO 4 TIMES/DAY
     Dates: start: 20170510
  4. RANITIDINE. [Concomitant]
     Active Substance: RANITIDINE
     Dates: start: 20170904
  5. TRIMETHOPRIM. [Concomitant]
     Active Substance: TRIMETHOPRIM
     Dates: start: 20170630, end: 20170703
  6. METHOTREXATE. [Suspect]
     Active Substance: METHOTREXATE
     Indication: PRODUCT USED FOR UNKNOWN INDICATION
     Dates: start: 20170904
  7. ATENOLOL/ATENOLOL HYDROCHLORIDE [Concomitant]
     Dosage: EACH MORNING
     Dates: start: 20170510
  8. GLYCERYL TRINITRATE [Concomitant]
     Active Substance: NITROGLYCERIN
     Indication: CHEST PAIN
     Route: 055
     Dates: start: 20170510
  9. GLIPIZIDE. [Concomitant]
     Active Substance: GLIPIZIDE
     Dates: start: 20170510
  10. PERINDOPRIL [Concomitant]
     Active Substance: PERINDOPRIL
     Dates: start: 20170510
  11. SENNA ALEXANDRINA [Concomitant]
     Active Substance: SENNA LEAF
     Dosage: TAKE ONE TO TWO TABLETS AT NIGHT.
     Dates: start: 20170630, end: 20170904
  12. AMLODIPINE [Concomitant]
     Active Substance: AMLODIPINE BESYLATE
     Dates: start: 20170510
  13. CODEINE PHOSPHATE/PARACETAMOL [Concomitant]
     Dosage: TAKE ONE TO TWO TABLETS UP TO FOUR TIMES DAILY.
     Dates: start: 20170630, end: 20170704
  14. PREDNISOLONE. [Concomitant]
     Active Substance: PREDNISOLONE
     Dates: start: 20170510
  15. ATORVASTATIN [Concomitant]
     Active Substance: ATORVASTATIN
     Dosage: AT NIGHT
     Dates: start: 20170510
  16. BUTEC [Concomitant]
     Active Substance: BUPRENORPHINE
     Dosage: (TUESDAY)  AS DIRECTED.
     Dates: start: 20170510

REACTIONS (2)
  - Nausea [Recovered/Resolved]
  - Drug hypersensitivity [Unknown]

NARRATIVE: CASE EVENT DATE: 20170904
